FAERS Safety Report 5271880-5 (Version None)
Quarter: 2007Q1

REPORT INFORMATION
  Report Type: 
  Country: None (occurrence: None)
  Receive Date: 20070316
  Receipt Date: 20070301
  Transmission Date: 20070707
  Serious: Yes (Disabling)
  Sender: FDA-Public Use
  Company Number: 8022417

PATIENT
  Age: 42 Year
  Sex: Male
  Weight: 60 kg

DRUGS (11)
  1. KEPPRA [Suspect]
     Dosage: 500 MG 2/D; PO
     Route: 048
     Dates: start: 20061123, end: 20061207
  2. KEPPRA [Suspect]
     Dosage: 750 MG 2/D;PO
     Route: 048
     Dates: start: 20061208, end: 20061229
  3. TEMESTA /00273201/ [Suspect]
     Dosage: 5 MG 1/D;PO (FEW MONTHS)
     Route: 048
  4. PRAZINE /00049902/ [Suspect]
     Dosage: 100 MG 1/D;PO (FEW MONTHS)
     Route: 048
  5. SUBUTEX [Suspect]
     Dosage: 1 MG 1/D;PO (FEW MONTHS)
     Route: 048
  6. DORMICUM /00036201/ [Suspect]
     Dosage: 30 MG 1/D;PO (FEW MONTHS)
     Route: 048
  7. ROHYPNOL [Suspect]
     Dosage: 1 MG 1/D;PO (FEW MONTHS)
     Route: 048
  8. LISITRIL [Suspect]
     Dosage: 5 MG 1/D;PO
     Route: 048
     Dates: start: 20060301, end: 20061213
  9. METOPROLOL SUCCINATE [Suspect]
     Dosage: 50 MG 1/D; PO (FEW MONTHS)
     Route: 048
  10. PLAVIX [Suspect]
     Dosage: 75 MG 1/D;PO (FEW MONTHS)
     Route: 048
  11. SELIPRAN [Concomitant]

REACTIONS (4)
  - DRUG INTOLERANCE [None]
  - HALLUCINATION [None]
  - PARANOIA [None]
  - TREATMENT NONCOMPLIANCE [None]
